FAERS Safety Report 23926004 (Version 1)
Quarter: 2024Q2

REPORT INFORMATION
  Report Type: Report from Study
  Country: IL (occurrence: IL)
  Receive Date: 20240531
  Receipt Date: 20240531
  Transmission Date: 20240716
  Serious: Yes (Hospitalization, Other)
  Sender: FDA-Public Use
  Company Number: IL-SA-SAC20240311000766

PATIENT
  Age: 68 Year
  Sex: Male

DRUGS (11)
  1. CAPLACIZUMAB [Suspect]
     Active Substance: CAPLACIZUMAB
     Indication: Thrombotic thrombocytopenic purpura
     Dosage: 10 MG, QD
     Route: 058
     Dates: start: 20240225, end: 2024
  2. CAPLACIZUMAB [Suspect]
     Active Substance: CAPLACIZUMAB
     Indication: Thrombotic thrombocytopenic purpura
     Dosage: 10 MG, QD
     Route: 058
     Dates: start: 20240225, end: 2024
  3. CAPLACIZUMAB [Suspect]
     Active Substance: CAPLACIZUMAB
     Indication: Thrombotic thrombocytopenic purpura
     Dosage: 10 MG, QD
     Route: 058
     Dates: start: 20240225, end: 2024
  4. CAPLACIZUMAB [Suspect]
     Active Substance: CAPLACIZUMAB
     Indication: Thrombotic thrombocytopenic purpura
     Dosage: 10 MG, QD
     Route: 058
     Dates: start: 20240225, end: 2024
  5. CAPLACIZUMAB [Suspect]
     Active Substance: CAPLACIZUMAB
     Dosage: 10 MG, QD
     Route: 058
     Dates: start: 2024, end: 20240516
  6. CAPLACIZUMAB [Suspect]
     Active Substance: CAPLACIZUMAB
     Dosage: 10 MG, QD
     Route: 058
     Dates: start: 2024, end: 20240516
  7. CAPLACIZUMAB [Suspect]
     Active Substance: CAPLACIZUMAB
     Dosage: 10 MG, QD
     Route: 058
     Dates: start: 2024, end: 20240516
  8. CAPLACIZUMAB [Suspect]
     Active Substance: CAPLACIZUMAB
     Dosage: 10 MG, QD
     Route: 058
     Dates: start: 2024, end: 20240516
  9. OZEMPIC [Concomitant]
     Active Substance: SEMAGLUTIDE
     Dosage: UNK
  10. LANTUS [Concomitant]
     Active Substance: INSULIN GLARGINE
     Dosage: UNK
  11. ASPIRIN [Concomitant]
     Active Substance: ASPIRIN
     Dosage: UNK

REACTIONS (11)
  - Deep vein thrombosis [Unknown]
  - Peripheral swelling [Not Recovered/Not Resolved]
  - Pulmonary oedema [Recovered/Resolved]
  - Castleman^s disease [Unknown]
  - Lymphadenopathy [Unknown]
  - Dyspnoea exertional [Recovering/Resolving]
  - Chills [Recovering/Resolving]
  - Illness [Recovering/Resolving]
  - Dyspnoea [Recovering/Resolving]
  - Platelet count decreased [Recovered/Resolved]
  - Haemoglobin decreased [Recovering/Resolving]

NARRATIVE: CASE EVENT DATE: 20240101
